FAERS Safety Report 22087994 (Version 2)
Quarter: 2023Q1

REPORT INFORMATION
  Report Type: Spontaneous
  Country: GB (occurrence: GB)
  Receive Date: 20230313
  Receipt Date: 20230313
  Transmission Date: 20230418
  Serious: Yes (Hospitalization, Other)
  Sender: FDA-Public Use
  Company Number: GB-009507513-2301GBR007585

PATIENT
  Age: 55 Year
  Sex: Female

DRUGS (6)
  1. CARBOPLATIN [Suspect]
     Active Substance: CARBOPLATIN
     Indication: Triple negative breast cancer
     Dosage: UNKNOWN
     Route: 065
     Dates: end: 20220919
  2. CARBOPLATIN [Suspect]
     Active Substance: CARBOPLATIN
     Dosage: UNKNOWN
     Route: 065
     Dates: start: 20221102
  3. PACLITAXEL [Suspect]
     Active Substance: PACLITAXEL
     Indication: Triple negative breast cancer
     Dosage: UNKNOWN
     Route: 065
     Dates: end: 20220919
  4. PACLITAXEL [Suspect]
     Active Substance: PACLITAXEL
     Dosage: UNKNOWN
     Route: 065
     Dates: start: 20221102
  5. KEYTRUDA [Suspect]
     Active Substance: PEMBROLIZUMAB
     Indication: Triple negative breast cancer
     Dosage: TWO CYCLES ADMINISTERED
     Route: 065
     Dates: start: 20220505, end: 20220727
  6. KEYTRUDA [Suspect]
     Active Substance: PEMBROLIZUMAB
     Route: 042
     Dates: start: 20220513, end: 20220727

REACTIONS (4)
  - Conversion disorder [Recovering/Resolving]
  - Myopathy [Unknown]
  - Neuropathy peripheral [Unknown]
  - Neurotoxicity [Recovering/Resolving]

NARRATIVE: CASE EVENT DATE: 20220101
